FAERS Safety Report 10598106 (Version 1)
Quarter: 2014Q4

REPORT INFORMATION
  Report Type: Spontaneous
  Country: US (occurrence: None)
  Receive Date: 20141120
  Receipt Date: 20141120
  Transmission Date: 20150529
  Serious: Yes (Other)
  Sender: FDA-Public Use
  Company Number: None

PATIENT
  Age: 38 Year
  Sex: Female
  Weight: 78.47 kg

DRUGS (1)
  1. AZYTHROMYCIN-RATIOPHARM 500 MG FILMTABLETTEN [Suspect]
     Active Substance: AZITHROMYCIN ANHYDROUS
     Indication: BRONCHITIS
     Dosage: 2 PILLS DAY 1, 1 PILL NEXT 4
     Route: 048
     Dates: start: 20141118, end: 20141118

REACTIONS (8)
  - Pain [None]
  - Headache [None]
  - Dizziness [None]
  - Insomnia [None]
  - Chills [None]
  - Feeling abnormal [None]
  - Feeling jittery [None]
  - Nausea [None]

NARRATIVE: CASE EVENT DATE: 20141118
